FAERS Safety Report 7533808-4 (Version None)
Quarter: 2011Q2

REPORT INFORMATION
  Report Type: 
  Country: None (occurrence: None)
  Receive Date: 20110608
  Receipt Date: 20060525
  Transmission Date: 20111010
  Serious: Yes (Hospitalization)
  Sender: FDA-Public Use
  Company Number: PHNR2005AU00911

PATIENT
  Sex: Male

DRUGS (1)
  1. CLOZAPINE [Suspect]
     Dosage: 12.5 - 100 MG, DAILY
     Dates: start: 20050415, end: 20050525

REACTIONS (2)
  - TROPONIN INCREASED [None]
  - PNEUMONIA [None]
